FAERS Safety Report 5755261-3 (Version None)
Quarter: 2008Q2

REPORT INFORMATION
  Report Type: 
  Country: None (occurrence: None)
  Receive Date: 20080529
  Receipt Date: 20080529
  Transmission Date: 20081010
  Serious: Yes (Other)
  Sender: FDA-Public Use
  Company Number: None

PATIENT
  Age: 41 Year
  Sex: Female

DRUGS (3)
  1. CHANTIX [Suspect]
  2. ZITHROMAX (URI) [Concomitant]
  3. PRILOSEC [Concomitant]

REACTIONS (1)
  - URTICARIA [None]
